FAERS Safety Report 4989426-5 (Version None)
Quarter: 2006Q2

REPORT INFORMATION
  Report Type: 
  Country: None (occurrence: None)
  Receive Date: 20060502
  Receipt Date: 20050419
  Transmission Date: 20061013
  Serious: Yes (Hospitalization)
  Sender: FDA-Public Use
  Company Number: US-MERCK-0504USA03807

PATIENT
  Age: 84 Year
  Sex: Male
  Weight: 91 kg

DRUGS (10)
  1. VIOXX [Suspect]
     Indication: BACK PAIN
     Route: 048
     Dates: start: 20030101, end: 20040801
  2. PLAVIX [Concomitant]
     Route: 048
  3. ECOTRIN [Concomitant]
     Route: 048
  4. ZOCOR [Concomitant]
     Route: 048
  5. ATENOLOL [Concomitant]
     Route: 048
  6. LISINOPRIL [Concomitant]
     Route: 048
  7. NITROGLYCERIN [Concomitant]
     Route: 060
  8. ISOSORBIDE DINITRATE [Concomitant]
     Route: 048
  9. FLOMAX (MORNIFLUMATE) [Concomitant]
     Route: 048
  10. PROSCAR [Concomitant]
     Route: 048

REACTIONS (4)
  - CEREBROVASCULAR ACCIDENT [None]
  - CORONARY ARTERY DISEASE [None]
  - MYOCARDIAL INFARCTION [None]
  - PROSTATE EXAMINATION ABNORMAL [None]
